FAERS Safety Report 4701010-7 (Version None)
Quarter: 2005Q2

REPORT INFORMATION
  Report Type: 
  Country: None (occurrence: None)
  Receive Date: 20050624
  Receipt Date: 20050611
  Transmission Date: 20051028
  Serious: Yes (Other)
  Sender: FDA-Public Use
  Company Number: 2005087368

PATIENT
  Sex: Male

DRUGS (3)
  1. ZITHROMAX [Suspect]
     Indication: PNEUMONIA
     Dosage: 500 MG (DAILY), INTRAVENOUS
     Route: 042
     Dates: start: 20050605, end: 20050606
  2. ZITHROMAX [Suspect]
     Indication: PNEUMONIA
     Dosage: 500 MG (250 MG, DAILY), ORAL
     Route: 048
     Dates: start: 20050608
  3. XANAX [Suspect]
     Indication: ILL-DEFINED DISORDER

REACTIONS (11)
  - ASTHENIA [None]
  - BLOOD PRESSURE DECREASED [None]
  - COUGH [None]
  - DRUG HYPERSENSITIVITY [None]
  - DRUG INTERACTION [None]
  - DRY MOUTH [None]
  - FEELING ABNORMAL [None]
  - INAPPROPRIATE SCHEDULE OF DRUG ADMINISTRATION [None]
  - MALAISE [None]
  - PNEUMONIA [None]
  - TREMOR [None]
